FAERS Safety Report 5093195-0 (Version None)
Quarter: 2006Q3

REPORT INFORMATION
  Report Type: 
  Country: None (occurrence: None)
  Receive Date: 20060728
  Receipt Date: 20060421
  Transmission Date: 20061208
  Serious: Yes (Death)
  Sender: FDA-Public Use
  Company Number: COT_0522_2006

PATIENT
  Age: 71 Year
  Sex: Male
  Weight: 77.1115 kg

DRUGS (14)
  1. VENTAVIS [Suspect]
     Indication: PULMONARY HYPERTENSION
     Dosage: 5 MCG 6XD IH
     Dates: start: 20051109
  2. FUROSEMIDE [Concomitant]
  3. WARFARIN SODIUM [Concomitant]
  4. DILTIAZEM HYDROCHLORIDE [Concomitant]
  5. LIPITOR [Concomitant]
  6. ASPIRIN [Concomitant]
  7. ATENOLOL [Concomitant]
  8. COZAAR [Concomitant]
  9. METFORMIN HYDROCHLORIDE [Concomitant]
  10. TYLENOL [Concomitant]
  11. NORTRIPTYLINE HCL [Concomitant]
  12. COMBIVENT [Concomitant]
  13. ADVAIR DISKUS 100/50 [Concomitant]
  14. FLONASE [Concomitant]

REACTIONS (7)
  - CONDITION AGGRAVATED [None]
  - CONTUSION [None]
  - COR PULMONALE [None]
  - OEDEMA PERIPHERAL [None]
  - PULMONARY HYPERTENSION [None]
  - RIGHT VENTRICULAR FAILURE [None]
  - SOMNOLENCE [None]
